FAERS Safety Report 15571448 (Version 1)
Quarter: 2018Q4

REPORT INFORMATION
  Report Type: Spontaneous
  Country: US (occurrence: US)
  Receive Date: 20181031
  Receipt Date: 20181031
  Transmission Date: 20190205
  Serious: Yes (Life-Threatening, Hospitalization)
  Sender: FDA-Public Use
  Company Number: None

PATIENT
  Sex: Female
  Weight: 80.7 kg

DRUGS (1)
  1. JARDIANCE [Suspect]
     Active Substance: EMPAGLIFLOZIN
     Indication: TYPE 2 DIABETES MELLITUS
     Route: 048
     Dates: start: 20181016, end: 20181030

REACTIONS (6)
  - Nausea [None]
  - Abdominal pain upper [None]
  - Suicide attempt [None]
  - Vomiting [None]
  - Euglycaemic diabetic ketoacidosis [None]
  - Blood glucose increased [None]

NARRATIVE: CASE EVENT DATE: 20181030
